FAERS Safety Report 16738942 (Version 1)
Quarter: 2019Q3

REPORT INFORMATION
  Report Type: Spontaneous
  Country: US (occurrence: US)
  Receive Date: 20190826
  Receipt Date: 20190826
  Transmission Date: 20191005
  Serious: No
  Sender: FDA-Public Use
  Company Number: US-JNJFOC-20190821607

PATIENT
  Age: 2 Month
  Sex: Female
  Weight: 4.99 kg

DRUGS (1)
  1. INFANTS TYLENOL [Suspect]
     Active Substance: ACETAMINOPHEN
     Indication: VACCINATION SITE PAIN
     Dosage: 1.25 ML AS DOCTOR RECOMMENDED ONCE ON EACH OF TWO DAYS
     Route: 048
     Dates: start: 20190803

REACTIONS (1)
  - Vomiting projectile [Recovered/Resolved]

NARRATIVE: CASE EVENT DATE: 20190803
